FAERS Safety Report 6681179-8 (Version None)
Quarter: 2010Q2

REPORT INFORMATION
  Report Type: 
  Country: None (occurrence: None)
  Receive Date: 20100412
  Receipt Date: 20100329
  Transmission Date: 20101027
  Serious: Yes (Disabling)
  Sender: FDA-Public Use
  Company Number: 1000012508

PATIENT
  Age: 63 Year
  Sex: Male
  Weight: 110 kg

DRUGS (6)
  1. NEBIVOLOL          (NEBIVOLOL HYDROCHLORIDE) [Suspect]
     Indication: HYPERTENSION
     Dosage: 5 MG (5 MG, 1 IN 1 D), ORAL
     Route: 048
     Dates: start: 20090525
  2. ZOFENIL [Concomitant]
  3. LEVOTHYROX [Concomitant]
  4. KARDEGIC [Concomitant]
  5. VASTAREL [Concomitant]
  6. GLIMEPIRIDE [Concomitant]

REACTIONS (4)
  - PRURITUS [None]
  - PURPURA [None]
  - SECRETION DISCHARGE [None]
  - TOXIC SKIN ERUPTION [None]
